APPROVED DRUG PRODUCT: DIOVAN
Active Ingredient: VALSARTAN
Strength: 40MG
Dosage Form/Route: TABLET;ORAL
Application: N021283 | Product #004 | TE Code: AB
Applicant: NOVARTIS PHARMACEUTICALS CORP
Approved: Aug 14, 2002 | RLD: Yes | RS: No | Type: RX